FAERS Safety Report 16360457 (Version 4)
Quarter: 2020Q4

REPORT INFORMATION
  Report Type: Other
  Country: US (occurrence: US)
  Receive Date: 20190528
  Receipt Date: 20201001
  Transmission Date: 20210113
  Serious: Yes (Other)
  Sender: FDA-Public Use
  Company Number: US-ROCHE-2327058

PATIENT
  Sex: Female

DRUGS (15)
  1. DESYREL [Concomitant]
     Active Substance: TRAZODONE HYDROCHLORIDE
     Dosage: TAKE 1/4 TH TABLET AT BEDTIME OR AS DIRECTED
     Route: 048
  2. IRON COMPLEX [Concomitant]
     Route: 048
  3. VITAMIN B6 [Concomitant]
     Active Substance: PYRIDOXINE HYDROCHLORIDE
     Dosage: FOR 1 MONTH ONLY
     Route: 048
  4. VITAMIN B COMPLEX [Concomitant]
     Active Substance: CYANOCOBALAMIN\DEXPANTHENOL\NIACINAMIDE\PYRIDOXINE HYDROCHLORIDE\RIBOFLAVIN 5^-PHOSPHATE SODIUM\THIAMINE HYDROCHLORIDE\VITAMIN B COMPLEX
     Route: 048
  5. SODIUM CHLORIDE 0.9% [Concomitant]
     Active Substance: SODIUM CHLORIDE
  6. WELLBUTRIN XL [Concomitant]
     Active Substance: BUPROPION HYDROCHLORIDE
     Route: 048
  7. ESTROVEN [Concomitant]
     Active Substance: DIETARY SUPPLEMENT
     Route: 048
  8. METAMUCIL SUGAR FREE [Concomitant]
     Dosage: 1 TABLESPOONFUL BY MOUTH 1 TIME PER DAY A NEEDED
     Route: 048
  9. COENZYME Q10 [Concomitant]
     Active Substance: DIETARY SUPPLEMENT\UBIDECARENONE
     Route: 048
  10. OCREVUS [Suspect]
     Active Substance: OCRELIZUMAB
     Indication: RELAPSING MULTIPLE SCLEROSIS
     Route: 042
     Dates: start: 20180504
  11. OCREVUS [Suspect]
     Active Substance: OCRELIZUMAB
     Dosage: ADMINISTER 520 ML (600 MG) INTRAVENOUSLY EVERY 6 MONTHS
     Route: 042
  12. LEXAPRO [Concomitant]
     Active Substance: ESCITALOPRAM OXALATE
     Route: 048
  13. VITAMIN D3 [Concomitant]
     Active Substance: CHOLECALCIFEROL
     Route: 048
  14. MAGNESIUM [Concomitant]
     Active Substance: MAGNESIUM
     Route: 048
  15. GINKGO [Concomitant]
     Active Substance: GINKGO
     Route: 048

REACTIONS (1)
  - Urinary tract infection [Unknown]
